FAERS Safety Report 5744959-9 (Version None)
Quarter: 2008Q2

REPORT INFORMATION
  Report Type: 
  Country: None (occurrence: None)
  Receive Date: 20080521
  Receipt Date: 20080512
  Transmission Date: 20081010
  Serious: Yes (Other)
  Sender: FDA-Public Use
  Company Number: US-JNJFOC-20080502838

PATIENT
  Sex: Female
  Weight: 71.67 kg

DRUGS (2)
  1. FENTANYL TRANSDERMAL SYSTEM [Suspect]
     Indication: PAIN
     Route: 062
  2. CHOLESTEROL PILL [Concomitant]
     Indication: BLOOD CHOLESTEROL INCREASED

REACTIONS (7)
  - DIZZINESS [None]
  - FEELING ABNORMAL [None]
  - GASTROINTESTINAL DISORDER [None]
  - MALAISE [None]
  - VISUAL ACUITY REDUCED [None]
  - VISUAL DISTURBANCE [None]
  - VOMITING [None]
